FAERS Safety Report 4725993-4 (Version None)
Quarter: 2005Q3

REPORT INFORMATION
  Report Type: 
  Country: None (occurrence: None)
  Receive Date: 20050727
  Receipt Date: 20050617
  Transmission Date: 20060218
  Serious: Yes (Other)
  Sender: FDA-Public Use
  Company Number: 200511219DE

PATIENT
  Age: 37 Year
  Sex: Female
  Weight: 57 kg

DRUGS (2)
  1. CLAFORAN [Suspect]
     Indication: ARTHRITIS
     Route: 042
     Dates: start: 20050520, end: 20050607
  2. CLAFORAN [Suspect]
     Indication: LYME DISEASE
     Route: 042
     Dates: start: 20050520, end: 20050607

REACTIONS (11)
  - ARTHRALGIA [None]
  - HEPATITIS [None]
  - LEUKOCYTOSIS [None]
  - LYMPHADENOPATHY [None]
  - MYALGIA [None]
  - PHOTODERMATOSIS [None]
  - PYREXIA [None]
  - SERUM SICKNESS [None]
  - SPLENOMEGALY [None]
  - THROMBOCYTOPENIA [None]
  - URTICARIA [None]
